FAERS Safety Report 10428254 (Version 4)
Quarter: 2014Q4

REPORT INFORMATION
  Report Type: Report from Study
  Country: CH (occurrence: CH)
  Receive Date: 20140903
  Receipt Date: 20141002
  Transmission Date: 20150528
  Serious: Yes (Death, Hospitalization, Other)
  Sender: FDA-Public Use
  Company Number: CH-BAYER-2014-104583

PATIENT
  Age: 55 Year
  Sex: Male
  Weight: 72 kg

DRUGS (8)
  1. XGEVA [Concomitant]
     Active Substance: DENOSUMAB
     Indication: METASTASES TO BONE
     Dosage: 120 MG DAILY
     Dates: start: 2012
  2. RADIUM-223 DICHLORIDE [Suspect]
     Active Substance: RADIUM RA-223 DICHLORIDE
     Indication: PROSTATE CANCER STAGE IV
     Dosage: 50 KBQ/KG
     Route: 042
     Dates: start: 20140402, end: 20140402
  3. RADIUM-223 DICHLORIDE [Suspect]
     Active Substance: RADIUM RA-223 DICHLORIDE
     Indication: PROSTATE CANCER STAGE IV
     Dosage: 50 KBQ/KG
     Dates: start: 20140625, end: 20140625
  4. OXYCONTIN [Concomitant]
     Active Substance: OXYCODONE HYDROCHLORIDE
     Indication: PAIN
     Dosage: 50 MG DAILY
  5. RADIUM-223 DICHLORIDE [Suspect]
     Active Substance: RADIUM RA-223 DICHLORIDE
     Indication: METASTASES TO BONE
     Dosage: 50 KBQ/KG
     Dates: start: 20140430, end: 20140430
  6. RADIUM-223 DICHLORIDE [Suspect]
     Active Substance: RADIUM RA-223 DICHLORIDE
     Indication: PROSTATE CANCER STAGE IV
     Dosage: 50 KBQ/KG
     Dates: start: 20140528, end: 20140528
  7. BICALUTAMIDE. [Concomitant]
     Active Substance: BICALUTAMIDE
     Dosage: UNK
     Dates: start: 20120601, end: 20140808
  8. LEUPROLIDE ACETATE. [Concomitant]
     Active Substance: LEUPROLIDE ACETATE

REACTIONS (7)
  - Thrombocytopenia [None]
  - Pleural effusion [None]
  - Sepsis [Fatal]
  - Escherichia sepsis [Recovered/Resolved]
  - Pericardial effusion [None]
  - Pancytopenia [None]
  - Adrenal insufficiency [None]

NARRATIVE: CASE EVENT DATE: 20140715
